FAERS Safety Report 4385060-9 (Version None)
Quarter: 2004Q2

REPORT INFORMATION
  Report Type: 
  Country: None (occurrence: None)
  Receive Date: 20040607
  Receipt Date: 20030421
  Transmission Date: 20050107
  Serious: Yes (Other)
  Sender: FDA-Public Use
  Company Number: 336480

PATIENT
  Age: 16 Year
  Sex: Female

DRUGS (3)
  1. ACCUTANE [Suspect]
     Dosage: 40 MG DAILY ORAL
     Route: 048
     Dates: start: 20020930, end: 20030202
  2. ORTHO TRI-CYCLEN [Suspect]
     Indication: CONTRACEPTION
     Dosage: 1 PER DAY ORAL
     Route: 048
     Dates: start: 20020915, end: 20021217
  3. PREDNISONE [Suspect]
     Indication: ACNE
     Dosage: 20 MG 1 PER DAY ORAL
     Route: 048
     Dates: start: 20021031, end: 20021205

REACTIONS (7)
  - CRYING [None]
  - DECREASED INTEREST [None]
  - DEPRESSION [None]
  - DIZZINESS [None]
  - HEADACHE [None]
  - INSOMNIA [None]
  - PANIC ATTACK [None]
